FAERS Safety Report 4674475-7 (Version None)
Quarter: 2005Q2

REPORT INFORMATION
  Report Type: 
  Country: None (occurrence: None)
  Receive Date: 20050526
  Receipt Date: 20050523
  Transmission Date: 20051028
  Serious: Yes (Disabling)
  Sender: FDA-Public Use
  Company Number: US-SOLVAY-00205001748

PATIENT
  Age: 551 Month
  Sex: Female
  Weight: 104.5 kg

DRUGS (5)
  1. PREDNISONE [Concomitant]
     Indication: BEHCET'S SYNDROME
     Dosage: DAILY DOSE: 60 MILLIGRAM(S)
     Route: 048
  2. ANDROGEL [Suspect]
     Indication: ACCIDENTAL EXPOSURE
     Dosage: DAILY DOSE: 5 GRAM(S)
     Route: 062
     Dates: start: 20040401, end: 20050301
  3. ANDROGEL [Suspect]
     Dosage: DAILY DOSE: 10 GRAM(S)
     Route: 062
     Dates: start: 20050301
  4. CYCLOSPORINE [Concomitant]
     Indication: BEHCET'S SYNDROME
     Dosage: DAILY DOSE:  UNKNOWN
     Route: 048
  5. BECHET'S SYNDROME MEDICATION [Concomitant]
     Indication: BEHCET'S SYNDROME
     Dosage: DAILY DOSE:  UNKNOWN
     Route: 065

REACTIONS (1)
  - BEHCET'S SYNDROME [None]
